FAERS Safety Report 22288379 (Version 1)
Quarter: 2023Q2

REPORT INFORMATION
  Report Type: Spontaneous
  Country: US (occurrence: None)
  Receive Date: 20230504
  Receipt Date: 20230504
  Transmission Date: 20230721
  Serious: Yes (Hospitalization)
  Sender: FDA-Public Use
  Company Number: None

PATIENT
  Age: 65 Year
  Sex: Female
  Weight: 34.02 kg

DRUGS (5)
  1. CAPECITABINE [Suspect]
     Active Substance: CAPECITABINE
     Indication: Oesophageal carcinoma
     Dosage: FREQUENCY : TWICE A DAY;?
     Route: 048
     Dates: start: 202303
  2. GABAPENTIN [Concomitant]
  3. MORPHINE SULFATE [Concomitant]
  4. OXYCODONE [Concomitant]
  5. SYNTHROID [Concomitant]

REACTIONS (1)
  - Haematemesis [None]
